FAERS Safety Report 6082528-4 (Version None)
Quarter: 2009Q1

REPORT INFORMATION
  Report Type: 
  Country: None (occurrence: None)
  Receive Date: 20090202
  Receipt Date: 20070816
  Transmission Date: 20090719
  Serious: No
  Sender: FDA-Public Use
  Company Number: 265584

PATIENT
  Age: 72 Year
  Sex: Male

DRUGS (2)
  1. NOVOLOG [Suspect]
     Indication: TYPE 1 DIABETES MELLITUS
     Dosage: SLIDING SCALE, SUBCUTANEOUS
     Route: 058
     Dates: start: 20050101
  2. LEVEMIR (INSULIN DETEMIR) SOLUTION FOR INJECTION [Concomitant]

REACTIONS (2)
  - BLOOD GLUCOSE INCREASED [None]
  - DRUG INEFFECTIVE [None]
